FAERS Safety Report 8345806-1 (Version None)
Quarter: 2012Q2

REPORT INFORMATION
  Report Type: 
  Country: None (occurrence: None)
  Receive Date: 20120509
  Receipt Date: 20120427
  Transmission Date: 20120825
  Serious: Yes (Hospitalization)
  Sender: FDA-Public Use
  Company Number: FR-ALVOGEN-2012AL000036

PATIENT
  Age: 54 Year
  Sex: Female

DRUGS (1)
  1. FURADANTIN [Suspect]
     Indication: CYSTITIS
     Route: 048

REACTIONS (10)
  - COUGH [None]
  - LUNG DISORDER [None]
  - PULMONARY EOSINOPHILIA [None]
  - RALES [None]
  - ALVEOLITIS [None]
  - BRONCHIECTASIS [None]
  - LYMPHOCYTIC INFILTRATION [None]
  - HEPATITIS [None]
  - INTERSTITIAL LUNG DISEASE [None]
  - INFLUENZA [None]
